FAERS Safety Report 7161267-2 (Version None)
Quarter: 2010Q4

REPORT INFORMATION
  Report Type: 
  Country: None (occurrence: None)
  Receive Date: 20101210
  Receipt Date: 20101210
  Transmission Date: 20110411
  Serious: Yes (Other)
  Sender: FDA-Public Use
  Company Number: None

PATIENT
  Age: 63 Year
  Sex: Female
  Weight: 86.1834 kg

DRUGS (2)
  1. CLINDAMYCIN [Suspect]
     Indication: INFECTION PROPHYLAXIS
     Dosage: 4 CAPSULES BEFORE SURGERY PO
     Route: 048
     Dates: start: 20101028, end: 20101103
  2. CLINDAMYCIN [Suspect]
     Indication: SURGERY
     Dosage: 4 CAPSULES BEFORE SURGERY PO
     Route: 048
     Dates: start: 20101028, end: 20101103

REACTIONS (5)
  - ARTHRALGIA [None]
  - DIARRHOEA [None]
  - GASTROINTESTINAL DISORDER [None]
  - JOINT SWELLING [None]
  - OEDEMA PERIPHERAL [None]
